FAERS Safety Report 14882850 (Version 1)
Quarter: 2018Q2

REPORT INFORMATION
  Report Type: Spontaneous
  Country: CO (occurrence: CO)
  Receive Date: 20180511
  Receipt Date: 20180511
  Transmission Date: 20180711
  Serious: Yes (Other)
  Sender: FDA-Public Use
  Company Number: CO-CELGENEUS-COL-20180302835

PATIENT
  Age: 62 Year
  Sex: Female

DRUGS (1)
  1. REVLIMID [Suspect]
     Active Substance: LENALIDOMIDE
     Indication: PLASMA CELL MYELOMA
     Dosage: 15 MILLIGRAM
     Route: 048
     Dates: start: 20141222, end: 20180504

REACTIONS (4)
  - Back pain [Recovered/Resolved]
  - Bone pain [Recovered/Resolved]
  - Upper respiratory tract infection [Not Recovered/Not Resolved]
  - Thyroid hormones increased [Unknown]

NARRATIVE: CASE EVENT DATE: 20180228
